FAERS Safety Report 7569743-5 (Version None)
Quarter: 2011Q2

REPORT INFORMATION
  Report Type: 
  Country: None (occurrence: None)
  Receive Date: 20110617
  Receipt Date: 20110607
  Transmission Date: 20111010
  Serious: Yes (Hospitalization)
  Sender: FDA-Public Use
  Company Number: 2011HGS-002327

PATIENT
  Age: 29 Year
  Sex: Female
  Weight: 91.173 kg

DRUGS (3)
  1. LORTAB(VICODIN) (PARACETAMOL, HYDROCODONE BITARTRATE) [Concomitant]
  2. MACROBID (NITROFURANTOIN)(NITROFURANTOIN) [Concomitant]
  3. BENLYSTA [Suspect]
     Indication: SYSTEMIC LUPUS ERYTHEMATOSUS
     Dosage: 10 MG/KG, 1 IN 14 D, INTRAVENOUS DRIP
     Route: 041
     Dates: start: 20110516, end: 20110516

REACTIONS (7)
  - HYPERTENSION [None]
  - HYPERHIDROSIS [None]
  - HYPERSENSITIVITY [None]
  - CHEST DISCOMFORT [None]
  - RASH [None]
  - DYSPNOEA [None]
  - WHEEZING [None]
